FAERS Safety Report 24682756 (Version 2)
Quarter: 2025Q1

REPORT INFORMATION
  Report Type: Spontaneous
  Country: GB (occurrence: GB)
  Receive Date: 20241201
  Receipt Date: 20250212
  Transmission Date: 20250408
  Serious: Yes (Other)
  Sender: AUROBINDO
  Company Number: GB-AUROBINDO-AUR-APL-2024-057390

PATIENT
  Age: 57 Year
  Sex: Female

DRUGS (3)
  1. LOPERAMIDE [Suspect]
     Active Substance: LOPERAMIDE
     Indication: Bile acid malabsorption
     Dosage: 16 MILLIGRAM, FOUR TIMES/DAY
     Route: 065
  2. CODEINE PHOSPHATE [Suspect]
     Active Substance: CODEINE PHOSPHATE
     Indication: Bile acid malabsorption
     Dosage: 60 MILLIGRAM, FOUR TIMES/DAY
     Route: 065
  3. RIFAXIMIN [Suspect]
     Active Substance: RIFAXIMIN
     Indication: Evidence based treatment
     Route: 065

REACTIONS (1)
  - Drug ineffective [Unknown]
